FAERS Safety Report 4725096-9 (Version None)
Quarter: 2005Q3

REPORT INFORMATION
  Report Type: 
  Country: None (occurrence: None)
  Receive Date: 20050725
  Receipt Date: 20050712
  Transmission Date: 20060218
  Serious: Yes (Death, Life-Threatening, Hospitalization)
  Sender: FDA-Public Use
  Company Number: CLOF-10041

PATIENT
  Age: 71 Year
  Sex: Male

DRUGS (11)
  1. CLOFARABINE [Suspect]
     Indication: ACUTE MYELOID LEUKAEMIA
     Dosage: 20 MG/M2 IV
     Route: 042
     Dates: start: 20050411, end: 20050416
  2. CLOFARABINE [Suspect]
     Indication: ACUTE MYELOID LEUKAEMIA
     Dosage: 20 MG/M2 IV
     Route: 042
     Dates: start: 20050517, end: 20050521
  3. VORICONAZOLE [Concomitant]
  4. AMIODARONE [Concomitant]
  5. METRONIDAZOLE [Concomitant]
  6. SEPTRIN [Concomitant]
  7. ACYCLOVIR [Concomitant]
  8. POTASSIUM CHLORIDE [Concomitant]
  9. METOCLOPRAMIDE [Concomitant]
  10. LINEZOLID [Concomitant]
  11. CHLORPHENIRAMINE MALEATE [Concomitant]

REACTIONS (17)
  - ARRHYTHMIA [None]
  - ATRIAL FIBRILLATION [None]
  - CARDIAC ARREST [None]
  - DEHYDRATION [None]
  - DIARRHOEA [None]
  - DYSPNOEA [None]
  - GENERAL PHYSICAL HEALTH DETERIORATION [None]
  - HAEMODIALYSIS [None]
  - HYPERKALAEMIA [None]
  - HYPOTENSION [None]
  - HYPOXIA [None]
  - LUNG CONSOLIDATION [None]
  - LUNG INFECTION [None]
  - NEUTROPENIA [None]
  - PULMONARY OEDEMA [None]
  - RENAL FAILURE [None]
  - RESPIRATORY FAILURE [None]
